FAERS Safety Report 9303447 (Version 1)
Quarter: 2013Q2

REPORT INFORMATION
  Report Type: Spontaneous
  Country: US (occurrence: US)
  Receive Date: 20130522
  Receipt Date: 20130522
  Transmission Date: 20140414
  Serious: No
  Sender: FDA-Public Use
  Company Number: US-BAYER-2013-063425

PATIENT
  Age: 49 Year
  Sex: Female
  Weight: 72.56 kg

DRUGS (2)
  1. ALEVE CAPLET [Suspect]
     Indication: BACK PAIN
     Dosage: 3 DF, UNK
  2. VICODIN [Concomitant]

REACTIONS (1)
  - Incorrect dose administered [None]
